FAERS Safety Report 22151327 (Version 2)
Quarter: 2023Q1

REPORT INFORMATION
  Report Type: Other
  Country: None (occurrence: IN)
  Receive Date: 20230329
  Receipt Date: 20230330
  Transmission Date: 20230417
  Serious: Yes (Other)
  Sender: FDA-Public Use
  Company Number: IN-Appco Pharma LLC-2139653

PATIENT

DRUGS (5)
  1. BACLOFEN [Suspect]
     Active Substance: BACLOFEN
     Indication: Neuromyelitis optica spectrum disorder
     Route: 064
  2. PREDNISOLONE [Suspect]
     Active Substance: PREDNISOLONE
     Route: 064
  3. AZATHIOPRINE [Suspect]
     Active Substance: AZATHIOPRINE
     Route: 064
  4. CARBAMAZEPINE [Suspect]
     Active Substance: CARBAMAZEPINE
     Route: 064
  5. GABAPENTIN [Suspect]
     Active Substance: GABAPENTIN
     Route: 064

REACTIONS (2)
  - Congenital hypothyroidism [Unknown]
  - Foetal exposure during pregnancy [Unknown]
